FAERS Safety Report 6296442-2 (Version None)
Quarter: 2009Q3

REPORT INFORMATION
  Report Type: 
  Country: None (occurrence: None)
  Receive Date: 20090804
  Receipt Date: 20090730
  Transmission Date: 20100115
  Serious: No
  Sender: FDA-Public Use
  Company Number: US-BAYER-200928574NA

PATIENT
  Sex: Male

DRUGS (1)
  1. CIPROFLOXACIN HYDROCHLORIDE [Suspect]
     Indication: RENAL STONE REMOVAL
     Dates: start: 20090724

REACTIONS (3)
  - GAIT DISTURBANCE [None]
  - MOBILITY DECREASED [None]
  - MUSCULOSKELETAL STIFFNESS [None]
